FAERS Safety Report 9161566 (Version 1)
Quarter: 2013Q1

REPORT INFORMATION
  Report Type: Spontaneous
  Country: US (occurrence: US)
  Receive Date: 20130313
  Receipt Date: 20130313
  Transmission Date: 20140127
  Serious: Yes (Other)
  Sender: FDA-Public Use
  Company Number: US-BAXTER-2013BAX007230

PATIENT
  Sex: Male

DRUGS (2)
  1. GAMMAGARD LIQUID [Suspect]
     Indication: BLOOD IMMUNOGLOBULIN G DECREASED
     Dosage: INCREASING UNSPECIFIED INFUSION RATES EVERY HALF HOUR
     Route: 042
  2. GAMMAGARD LIQUID [Suspect]
     Indication: IMMUNODEFICIENCY

REACTIONS (2)
  - Restless legs syndrome [Recovered/Resolved]
  - Back pain [Recovered/Resolved]
